FAERS Safety Report 4269746-2 (Version None)
Quarter: 2004Q1

REPORT INFORMATION
  Report Type: 
  Country: None (occurrence: None)
  Receive Date: 20040109
  Receipt Date: 20031231
  Transmission Date: 20041129
  Serious: Yes (Death, Hospitalization)
  Sender: FDA-Public Use
  Company Number: 200400030

PATIENT
  Age: 25 Year
  Sex: Male

DRUGS (1)
  1. TYLENOL [Suspect]
     Dosage: PO
     Route: 048

REACTIONS (1)
  - OVERDOSE [None]
